FAERS Safety Report 9616976 (Version 1)
Quarter: 2013Q4

REPORT INFORMATION
  Report Type: Spontaneous
  Country: PL (occurrence: PL)
  Receive Date: 20131011
  Receipt Date: 20131011
  Transmission Date: 20140711
  Serious: Yes (Hospitalization, Other)
  Sender: FDA-Public Use
  Company Number: PL-BAYER-2013-123227

PATIENT
  Age: 60 Year
  Sex: Male

DRUGS (32)
  1. ACETYLSALICYLIC ACID({=100 MG) [Suspect]
     Dosage: 75 MG, QD
     Dates: start: 20081126, end: 20130322
  2. ACETYLSALICYLIC ACID({=100 MG) [Suspect]
     Dosage: 75 MG, QD
     Dates: start: 20130403
  3. CLOPIDOGREL BISULFATE [Suspect]
     Indication: PRODUCT USED FOR UNKNOWN INDICATION
     Dosage: 75 MG, QD
     Dates: start: 20110805, end: 20130322
  4. CLOPIDOGREL BISULFATE [Suspect]
     Indication: PRODUCT USED FOR UNKNOWN INDICATION
     Dosage: 75 MG, QD
     Dates: start: 20130403
  5. PANTOPRAZOLE [Concomitant]
     Dosage: 40MG, 1 IN 1D
     Dates: start: 20110805
  6. BISOPROLOL [Concomitant]
     Dosage: 10MG, 1 IN 1D
     Dates: start: 20081126, end: 20120925
  7. LISINOPRIL [Concomitant]
     Dosage: 10MG, 2 IN 1D
     Dates: start: 20110806, end: 20120925
  8. LISINOPRIL [Concomitant]
     Dosage: UNK
     Dates: start: 20120926
  9. AMLODIPINE [Concomitant]
     Dosage: 5MG, 1 IN 1D
     Dates: start: 20110805, end: 20130402
  10. AMLODIPINE [Concomitant]
     Dosage: 10MG, 1 IN 1D
     Dates: start: 20130403
  11. ATORVASTATIN [Concomitant]
     Dosage: 40MG, 1 IN 1D
     Dates: start: 20110805
  12. METFORMIN [Concomitant]
     Dosage: 500MG, 3 IN 1D
     Dates: start: 2009, end: 20120924
  13. METFORMIN [Concomitant]
     Dosage: 500MG, 2 IN 1D
     Dates: start: 20120925, end: 20130402
  14. METFORMIN [Concomitant]
     Dosage: 500MG, 1 IN 1D
     Dates: start: 20130403
  15. INSULIN HUMAN [Concomitant]
     Dosage: 12 - 10 - 8 (3 IN 1D)
     Dates: start: 20110805, end: 20120925
  16. INSULIN HUMAN [Concomitant]
     Dosage: 24 UNITS (1 IN 1D)
     Dates: start: 20120925
  17. INSULIN ISOPHANE BW [Concomitant]
     Dosage: 12 UNIT (1 IN 1D)
     Dates: start: 200811, end: 20120924
  18. INSULIN ISOPHANE BW [Concomitant]
     Dosage: 24 UNIT (1 IN 1D)
     Dates: start: 20120925
  19. GLYCERYL TRINITRATE [Concomitant]
     Dosage: 0.4 MG, PRN
     Dates: start: 20081126, end: 20111102
  20. GLYCERYL TRINITRATE [Concomitant]
     Dosage: 0.4 MG, PRN
     Dates: start: 20110812
  21. GLYCERYL TRINITRATE [Concomitant]
     Dosage: 0.4 MG, PRN
     Dates: start: 20111103
  22. NEBIVOLOL [Concomitant]
     Dosage: 5MG, 1 IN 1D
     Dates: start: 20120926
  23. TORASEMIDE [Concomitant]
     Dosage: 5MG, 1 IN 1D
     Dates: start: 20120926
  24. TORASEMIDE [Concomitant]
     Dosage: 10 MG
     Dates: start: 2010, end: 20110805
  25. POTASSIUM CHLORIDE [Concomitant]
     Dosage: 600MG, 1 IN 1D
     Dates: start: 20120926
  26. RAMIPRIL [Concomitant]
     Dosage: 40MG, 1 IN 1D
     Dates: start: 20081126, end: 20110805
  27. SIMVASTATIN [Concomitant]
     Dosage: 40 MG, 1 IN 1D
     Dates: start: 20081126, end: 20110805
  28. INSULIN LISPRO [Concomitant]
     Dosage: 12 -10- 8 UNITS (3 IN 1D)
     Dates: start: 20110813, end: 20120925
  29. INSULIN LISPRO [Concomitant]
     Dosage: 12-14-12 UNITS (3 IN 1D)
     Dates: start: 20120926, end: 20130403
  30. HUMULIN R [Concomitant]
     Dosage: 3 IN 1D
     Dates: start: 200911
  31. HUMULIN N [Concomitant]
     Dosage: 1 IN 1D
     Dates: start: 200811
  32. ESTAZOLAM [Concomitant]
     Dosage: 2 MG
     Dates: start: 201304, end: 201304

REACTIONS (2)
  - Adenocarcinoma of colon [Not Recovered/Not Resolved]
  - Anaemia [Not Recovered/Not Resolved]
